FAERS Safety Report 7563927-8 (Version None)
Quarter: 2011Q2

REPORT INFORMATION
  Report Type: 
  Country: None (occurrence: None)
  Receive Date: 20110622
  Receipt Date: 20110610
  Transmission Date: 20111010
  Serious: Yes (Other)
  Sender: FDA-Public Use
  Company Number: CA-UCBSA-028007

PATIENT
  Sex: Female
  Weight: 117.9 kg

DRUGS (5)
  1. LISINOPRIL [Concomitant]
     Indication: CARDIAC DISORDER
  2. CIMZIA [Suspect]
     Indication: RHEUMATOID ARTHRITIS
     Route: 058
     Dates: start: 20101208, end: 20110105
  3. NEXIUM [Concomitant]
  4. CIMZIA [Suspect]
     Dosage: RECENT DOSE ON: 03/MAR/2011
     Route: 058
     Dates: start: 20110105
  5. ATENOLOL [Concomitant]
     Indication: CARDIAC DISORDER

REACTIONS (4)
  - ECZEMA [None]
  - PAIN [None]
  - PSORIASIS [None]
  - DRUG INEFFECTIVE [None]
